FAERS Safety Report 9333369 (Version 1)
Quarter: 2013Q2

REPORT INFORMATION
  Report Type: Spontaneous
  Country: US (occurrence: US)
  Receive Date: 20130606
  Receipt Date: 20130606
  Transmission Date: 20140414
  Serious: No
  Sender: FDA-Public Use
  Company Number: US-LEHIGH_VALLEY-USA-2011POI058000004

PATIENT
  Age: 65 Year
  Sex: Male

DRUGS (2)
  1. OXYCODONE HYDROCHLORIDE [Suspect]
     Indication: BACK PAIN
     Dosage: 60 TO 80 MG PER DAY
     Dates: start: 201111, end: 201111
  2. OXYCODONE HYDROCHLORIDE [Suspect]
     Indication: NECK PAIN

REACTIONS (1)
  - Drug ineffective [Recovered/Resolved]
